FAERS Safety Report 4818099-7 (Version None)
Quarter: 2005Q4

REPORT INFORMATION
  Report Type: 
  Country: None (occurrence: None)
  Receive Date: 20051102
  Receipt Date: 20051018
  Transmission Date: 20060501
  Serious: Yes (Death)
  Sender: FDA-Public Use
  Company Number: KR-GLAXOSMITHKLINE-B0397793A

PATIENT
  Age: 46 Year
  Sex: Female

DRUGS (8)
  1. LAMICTAL [Suspect]
     Dosage: 25MG PER DAY
     Route: 048
     Dates: start: 20051007, end: 20051011
  2. CHEMOTHERAPY [Concomitant]
     Indication: DRUG USE FOR UNKNOWN INDICATION
     Route: 065
  3. CIMETIDINE [Concomitant]
     Dosage: 200MG TWICE PER DAY
     Route: 048
     Dates: start: 20050922, end: 20051012
  4. TEGRETOL [Concomitant]
     Dosage: 300MG TWICE PER DAY
     Route: 048
     Dates: start: 20050811, end: 20051006
  5. FORTUM [Concomitant]
     Dosage: 2G THREE TIMES PER DAY
     Route: 042
     Dates: start: 20050922, end: 20051001
  6. ISEPAMICIN [Concomitant]
     Dosage: 200MG PER DAY
     Route: 042
     Dates: start: 20050922, end: 20051001
  7. MEROPEN [Concomitant]
     Dosage: 600MG THREE TIMES PER DAY
     Route: 042
     Dates: start: 20051006, end: 20051013
  8. UNSPECIFIED MEDICATION [Concomitant]
     Dosage: 20MG THREE TIMES PER DAY
     Route: 048
     Dates: start: 20050927, end: 20051012

REACTIONS (3)
  - DISSEMINATED INTRAVASCULAR COAGULATION [None]
  - MULTI-ORGAN FAILURE [None]
  - PLATELET COUNT INCREASED [None]
